FAERS Safety Report 12245261 (Version 2)
Quarter: 2016Q2

REPORT INFORMATION
  Report Type: Spontaneous
  Country: US (occurrence: US)
  Receive Date: 20160407
  Receipt Date: 20160418
  Transmission Date: 20160815
  Serious: Yes (Death)
  Sender: FDA-Public Use
  Company Number: US-PFIZER INC-2016175431

PATIENT
  Age: 76 Year
  Sex: Male
  Weight: 80 kg

DRUGS (4)
  1. ZANTAC [Concomitant]
     Active Substance: RANITIDINE HYDROCHLORIDE
     Dosage: UNK
  2. SUTENT [Suspect]
     Active Substance: SUNITINIB MALATE
     Indication: RENAL CANCER STAGE IV
     Dosage: 50 MG, CYCLIC (28 DAYS ON/14 DAYS OFF)
     Dates: start: 20160314, end: 20160321
  3. HYDROCODONE BITARTRATE AND ACETAMINOPHEN [Concomitant]
     Active Substance: ACETAMINOPHEN\HYDROCODONE BITARTRATE
     Dosage: UNK
  4. LEXAPRO [Concomitant]
     Active Substance: ESCITALOPRAM OXALATE
     Dosage: UNK

REACTIONS (12)
  - Renal failure [Fatal]
  - Dyspnoea [Unknown]
  - Acne [Unknown]
  - Hot flush [Unknown]
  - Abdominal pain [Unknown]
  - Epistaxis [Unknown]
  - Rash pruritic [Unknown]
  - Hepatic failure [Fatal]
  - Flushing [Unknown]
  - Insomnia [Unknown]
  - Yellow skin [Unknown]
  - Pain [Unknown]

NARRATIVE: CASE EVENT DATE: 20160319
